FAERS Safety Report 9179179 (Version 1)
Quarter: 2012Q4

REPORT INFORMATION
  Report Type: 
  Country: US (occurrence: US)
  Receive Date: 20121029
  Receipt Date: 20121029
  Transmission Date: 20130627
  Serious: No
  Sender: FDA-Public Use
  Company Number: US-AMGEN-USASP2012052500

PATIENT
  Age: 53 Year
  Sex: Male
  Weight: 80 kg

DRUGS (5)
  1. ENBREL [Suspect]
     Indication: PRODUCT USED FOR UNKNOWN INDICATION
     Dosage: 50 mg, qwk
     Route: 058
  2. CELEBREX [Concomitant]
     Dosage: 200 mg, UNK
  3. HUMIRA [Concomitant]
     Dosage: Humira pen kit 40mg/0.8
  4. ATENOLOL [Concomitant]
     Dosage: 100 mg, UNK
  5. SULFASALAZINE [Concomitant]
     Dosage: 500 mg, UNK

REACTIONS (1)
  - Drug ineffective [Unknown]
